FAERS Safety Report 6426684-4 (Version None)
Quarter: 2009Q4

REPORT INFORMATION
  Report Type: 
  Country: None (occurrence: None)
  Receive Date: 20091104
  Receipt Date: 20091030
  Transmission Date: 20100525
  Serious: Yes (Death, Other)
  Sender: FDA-Public Use
  Company Number: JP-BAYER-200913968BYL

PATIENT
  Age: 66 Year
  Sex: Male

DRUGS (1)
  1. NEXAVAR [Suspect]
     Indication: HEPATIC NEOPLASM MALIGNANT
     Dosage: TOTAL DAILY DOSE: 400 MG  UNIT DOSE: 200 MG
     Route: 048
     Dates: start: 20091001, end: 20091020

REACTIONS (5)
  - DEATH [None]
  - DIARRHOEA [None]
  - FAECES DISCOLOURED [None]
  - MESENTERIC VASCULAR INSUFFICIENCY [None]
  - UPPER GASTROINTESTINAL HAEMORRHAGE [None]
